FAERS Safety Report 22005858 (Version 2)
Quarter: 2023Q1

REPORT INFORMATION
  Report Type: Spontaneous
  Country: DE (occurrence: DE)
  Receive Date: 20230217
  Receipt Date: 20230222
  Transmission Date: 20230418
  Serious: Yes (Hospitalization)
  Sender: FDA-Public Use
  Company Number: DE-MYLANLABS-2023M1018206

PATIENT
  Age: 33 Year
  Sex: Female

DRUGS (29)
  1. RISPERIDONE [Suspect]
     Active Substance: RISPERIDONE
     Indication: Tardive dyskinesia
     Dosage: UNK
     Route: 065
  2. RISPERIDONE [Suspect]
     Active Substance: RISPERIDONE
     Indication: Dystonia
  3. CLOZAPINE [Suspect]
     Active Substance: CLOZAPINE
     Indication: Tardive dyskinesia
     Dosage: UNK
     Route: 065
  4. CLOZAPINE [Suspect]
     Active Substance: CLOZAPINE
     Indication: Dystonia
  5. OLANZAPINE [Suspect]
     Active Substance: OLANZAPINE
     Indication: Tardive dyskinesia
     Dosage: UNK
     Route: 065
  6. OLANZAPINE [Suspect]
     Active Substance: OLANZAPINE
     Indication: Dystonia
  7. OXAZEPAM [Suspect]
     Active Substance: OXAZEPAM
     Indication: Tardive dyskinesia
     Dosage: UNK
     Route: 065
  8. OXAZEPAM [Suspect]
     Active Substance: OXAZEPAM
     Indication: Dystonia
  9. BACLOFEN [Suspect]
     Active Substance: BACLOFEN
     Indication: Tardive dyskinesia
     Dosage: UNK
     Route: 065
  10. BACLOFEN [Suspect]
     Active Substance: BACLOFEN
     Indication: Dystonia
  11. PIPAMPERONE [Suspect]
     Active Substance: PIPAMPERONE
     Indication: Tardive dyskinesia
     Dosage: UNK
     Route: 065
  12. PIPAMPERONE [Suspect]
     Active Substance: PIPAMPERONE
     Indication: Dystonia
  13. TETRABENAZINE [Suspect]
     Active Substance: TETRABENAZINE
     Indication: Tardive dyskinesia
     Dosage: UNK
     Route: 065
  14. TETRABENAZINE [Suspect]
     Active Substance: TETRABENAZINE
     Indication: Dystonia
  15. CLONAZEPAM [Suspect]
     Active Substance: CLONAZEPAM
     Indication: Tardive dyskinesia
     Dosage: UNK
     Route: 065
  16. CLONAZEPAM [Suspect]
     Active Substance: CLONAZEPAM
     Indication: Dystonia
  17. CLOBAZAM [Suspect]
     Active Substance: CLOBAZAM
     Indication: Tardive dyskinesia
     Dosage: UNK
     Route: 065
  18. CLOBAZAM [Suspect]
     Active Substance: CLOBAZAM
     Indication: Dystonia
  19. TIZANIDINE [Suspect]
     Active Substance: TIZANIDINE
     Indication: Tardive dyskinesia
     Dosage: UNK
     Route: 065
  20. TIZANIDINE [Suspect]
     Active Substance: TIZANIDINE
     Indication: Dystonia
  21. DANTROLENE [Suspect]
     Active Substance: DANTROLENE
     Indication: Tardive dyskinesia
     Dosage: UNK
     Route: 065
  22. DANTROLENE [Suspect]
     Active Substance: DANTROLENE
     Indication: Dystonia
  23. BUSPIRONE [Suspect]
     Active Substance: BUSPIRONE HYDROCHLORIDE
     Indication: Tardive dyskinesia
     Dosage: UNK
     Route: 065
  24. BUSPIRONE [Suspect]
     Active Substance: BUSPIRONE HYDROCHLORIDE
     Indication: Dystonia
  25. BOTULINUM TOXIN NOS [Suspect]
     Active Substance: BOTULINUM TOXIN NOS
     Indication: Tardive dyskinesia
     Dosage: UNK
     Route: 065
  26. BOTULINUM TOXIN NOS [Suspect]
     Active Substance: BOTULINUM TOXIN NOS
     Indication: Dystonia
  27. MIRTAZAPINE [Concomitant]
     Active Substance: MIRTAZAPINE
     Indication: Antidepressant therapy
     Dosage: UNK
     Route: 065
  28. TRIMIPRAMINE [Concomitant]
     Active Substance: TRIMIPRAMINE
     Indication: Antidepressant therapy
     Dosage: UNK
     Route: 065
  29. FLUOXETINE [Concomitant]
     Active Substance: FLUOXETINE HYDROCHLORIDE
     Indication: Antidepressant therapy
     Dosage: UNK
     Route: 065

REACTIONS (1)
  - Drug ineffective [Unknown]
